FAERS Safety Report 15228956 (Version 1)
Quarter: 2018Q3

REPORT INFORMATION
  Report Type: Report from Study
  Country: US (occurrence: US)
  Receive Date: 20180801
  Receipt Date: 20180801
  Transmission Date: 20181010
  Serious: No
  Sender: FDA-Public Use
  Company Number: US-AMGEN-USASL2017125431

PATIENT
  Sex: Male

DRUGS (2)
  1. PREDNISONE. [Concomitant]
     Active Substance: PREDNISONE
     Dosage: 5 MG, UNK
  2. NPLATE [Suspect]
     Active Substance: ROMIPLOSTIM
     Indication: IMMUNE THROMBOCYTOPENIC PURPURA
     Dosage: 135 MUG, QWK
     Route: 065
     Dates: end: 201709

REACTIONS (10)
  - Coagulation time shortened [Unknown]
  - Platelet count decreased [Unknown]
  - Contusion [Unknown]
  - Nausea [Unknown]
  - Weight abnormal [Unknown]
  - Platelet count abnormal [Unknown]
  - Myalgia [Unknown]
  - Peripheral swelling [Unknown]
  - Joint swelling [Unknown]
  - Arthralgia [Unknown]
